FAERS Safety Report 4885277-0 (Version None)
Quarter: 2006Q1

REPORT INFORMATION
  Report Type: 
  Country: None (occurrence: None)
  Receive Date: 20060119
  Receipt Date: 20051122
  Transmission Date: 20060701
  Serious: Yes (Other)
  Sender: FDA-Public Use
  Company Number: PHBS2005NL17280

PATIENT
  Age: 54 Year
  Sex: Female

DRUGS (4)
  1. LEPONEX [Suspect]
     Indication: PSYCHOTIC DISORDER
     Dosage: 300 MG, BID
     Route: 048
     Dates: start: 20050818, end: 20051114
  2. ASCAL CARDIO [Concomitant]
     Dosage: 100 MG, QD
     Dates: start: 20050101
  3. HYDROCHLOROTHIAZIDE [Concomitant]
     Dosage: 25 MG,  QD
     Dates: start: 20050101
  4. SELOKEN [Concomitant]
     Dosage: 50 MG, QD
     Dates: start: 20050101

REACTIONS (4)
  - COGNITIVE DETERIORATION [None]
  - DRUG LEVEL INCREASED [None]
  - INTRACRANIAL VENOUS SINUS THROMBOSIS [None]
  - ORTHOSTATIC HYPOTENSION [None]
